FAERS Safety Report 5114660-3 (Version None)
Quarter: 2006Q3

REPORT INFORMATION
  Report Type: 
  Country: None (occurrence: None)
  Receive Date: 20060926
  Receipt Date: 20060914
  Transmission Date: 20061208
  Serious: Yes (Death, Other)
  Sender: FDA-Public Use
  Company Number: US-JNJFOC-20040303190

PATIENT
  Sex: Female

DRUGS (12)
  1. REMICADE [Suspect]
     Indication: RHEUMATOID ARTHRITIS
     Route: 042
  2. THYROXIN [Concomitant]
  3. PREMARIN [Concomitant]
  4. AMIODARONE HCL [Concomitant]
  5. FOLIC ACID [Concomitant]
  6. AVAPRO [Concomitant]
  7. LANOXIN [Concomitant]
  8. COUMADIN [Concomitant]
  9. POTASSIUM [Concomitant]
  10. LASIX [Concomitant]
  11. CALCIUM GLUCONATE [Concomitant]
  12. DARVOCET [Concomitant]

REACTIONS (2)
  - DEATH [None]
  - NASOPHARYNGEAL CANCER [None]
